FAERS Safety Report 23101266 (Version 1)
Quarter: 2023Q4

REPORT INFORMATION
  Report Type: Spontaneous
  Country: CN (occurrence: CN)
  Receive Date: 20231024
  Receipt Date: 20231024
  Transmission Date: 20240110
  Serious: Yes (Other)
  Sender: FDA-Public Use
  Company Number: CN-PFIZER INC-PV202300173695

PATIENT
  Age: 12 Year
  Sex: Female
  Weight: 35 kg

DRUGS (4)
  1. METHOTREXATE SODIUM [Suspect]
     Active Substance: METHOTREXATE SODIUM
     Indication: Chemotherapy
     Dosage: 28 ML, 1X/DAY
     Route: 041
     Dates: start: 20231004, end: 20231004
  2. METHOTREXATE SODIUM [Suspect]
     Active Substance: METHOTREXATE SODIUM
     Indication: Acute lymphocytic leukaemia
     Dosage: 28 ML, 1X/DAY
     Route: 041
     Dates: start: 20231004, end: 20231004
  3. SODIUM CHLORIDE [Concomitant]
     Active Substance: SODIUM CHLORIDE
     Indication: Vehicle solution use
     Dosage: 250 ML, 1X/DAY
     Route: 041
     Dates: start: 20231004, end: 20231004
  4. SODIUM CHLORIDE [Concomitant]
     Active Substance: SODIUM CHLORIDE
     Dosage: 250 ML, 1X/DAY
     Route: 041
     Dates: start: 20231004, end: 20231004

REACTIONS (2)
  - Renal impairment [Unknown]
  - Ammonia increased [Unknown]

NARRATIVE: CASE EVENT DATE: 20231006
